FAERS Safety Report 24715757 (Version 1)
Quarter: 2024Q4

REPORT INFORMATION
  Report Type: Spontaneous
  Country: US (occurrence: US)
  Receive Date: 20241210
  Receipt Date: 20241210
  Transmission Date: 20250115
  Serious: No
  Sender: ABBVIE
  Company Number: US-ABBVIE-6036221

PATIENT
  Sex: Female

DRUGS (1)
  1. LO LOESTRIN FE [Suspect]
     Active Substance: ETHINYL ESTRADIOL\NORETHINDRONE ACETATE
     Indication: Polycystic ovarian syndrome
     Route: 048

REACTIONS (5)
  - Product quality issue [Unknown]
  - Drug ineffective [Unknown]
  - Muscle spasms [Unknown]
  - Heavy menstrual bleeding [Unknown]
  - Intermenstrual bleeding [Unknown]
